FAERS Safety Report 14737977 (Version 1)
Quarter: 2018Q2

REPORT INFORMATION
  Report Type: Spontaneous
  Country: US (occurrence: US)
  Receive Date: 20180409
  Receipt Date: 20180409
  Transmission Date: 20180711
  Serious: No
  Sender: FDA-Public Use
  Company Number: US-IPSEN BIOPHARMACEUTICALS, INC.-2018-03932

PATIENT

DRUGS (1)
  1. DYSPORT [Suspect]
     Active Substance: ABOBOTULINUMTOXINA
     Indication: TORTICOLLIS
     Dosage: 500 IU
     Route: 066

REACTIONS (2)
  - Pain [Unknown]
  - Dysphagia [Recovering/Resolving]
